FAERS Safety Report 9337053 (Version 1)
Quarter: 2013Q2

REPORT INFORMATION
  Report Type: Spontaneous
  Country: US (occurrence: US)
  Receive Date: 20130607
  Receipt Date: 20130607
  Transmission Date: 20140414
  Serious: Yes (Other)
  Sender: FDA-Public Use
  Company Number: US-PFIZER INC-2013171720

PATIENT
  Age: 66 Year
  Sex: Female
  Weight: 104 kg

DRUGS (6)
  1. ARTHROTEC [Suspect]
     Indication: ARTHRITIS
     Dosage: 75 MG, TWO TIMES A DAY
     Route: 048
  2. OMEPRAZOLE [Concomitant]
     Dosage: UNK
  3. DILTIAZEM [Concomitant]
     Dosage: 240 MG, UNK
  4. SYNTHROID [Concomitant]
     Dosage: 150 UG, UNK
  5. LEXAPRO [Concomitant]
     Dosage: 20 MG, UNK
  6. WELLBUTRIN SR [Concomitant]
     Dosage: 150 MG, UNK

REACTIONS (3)
  - Myelopathy [Unknown]
  - Lumbar spinal stenosis [Unknown]
  - Spinal osteoarthritis [Unknown]
